FAERS Safety Report 26020818 (Version 1)
Quarter: 2025Q4

REPORT INFORMATION
  Report Type: Spontaneous
  Country: US (occurrence: None)
  Receive Date: 20251108
  Receipt Date: 20251108
  Transmission Date: 20260117
  Serious: Yes (Death, Hospitalization)
  Sender: FDA-CTU
  Company Number: None

PATIENT
  Age: 15 Year
  Sex: Male
  Weight: 60.1 kg

DRUGS (6)
  1. CALASPARGASE PEGOL-MKNL [Suspect]
     Active Substance: CALASPARGASE PEGOL-MKNL
     Dosage: OTHER QUANTITY : 3997.5 UNITE;
     Dates: end: 20251011
  2. CYTARABINE [Suspect]
     Active Substance: CYTARABINE
     Route: 037
     Dates: end: 20251024
  3. DEXAMETHASONE [Suspect]
     Active Substance: DEXAMETHASONE
     Dates: end: 20251023
  4. DOXORUBICIN HYDROCHLORIDE [Suspect]
     Active Substance: DOXORUBICIN HYDROCHLORIDE
     Dates: end: 20251010
  5. METHOTREXATE [Suspect]
     Active Substance: METHOTREXATE
     Route: 037
     Dates: end: 20251017
  6. VINCRISTINE SULFATE [Suspect]
     Active Substance: VINCRISTINE SULFATE
     Dosage: OTHER QUANTITY : 4.5 MG DOSE REDUCED DUE TO GRADE 4 HYPERBILIRUBINEMIA;
     Dates: end: 20251024

REACTIONS (12)
  - Sinusitis [None]
  - Exophthalmos [None]
  - Sepsis [None]
  - Anisocoria [None]
  - Periorbital oedema [None]
  - Mucormycosis [None]
  - Candida infection [None]
  - Klebsiella infection [None]
  - Mucormycosis [None]
  - Herpes simplex [None]
  - Chronic leukaemia [None]
  - Cardiac arrest [None]

NARRATIVE: CASE EVENT DATE: 20251025
